FAERS Safety Report 7643094-2 (Version None)
Quarter: 2011Q3

REPORT INFORMATION
  Report Type: 
  Country: None (occurrence: None)
  Receive Date: 20110728
  Receipt Date: 20110324
  Transmission Date: 20111222
  Serious: Yes (Hospitalization)
  Sender: FDA-Public Use
  Company Number: US-ASTRAZENECA-2011SE17080

PATIENT
  Sex: Female
  Weight: 63.3 kg

DRUGS (6)
  1. ALPRAZOLAM [Concomitant]
     Route: 048
  2. PROZAC [Concomitant]
     Route: 048
  3. ADDERALL XR 10 [Concomitant]
     Route: 048
  4. ALPRAZOLAM [Concomitant]
     Route: 048
  5. PREVACID [Concomitant]
     Route: 048
  6. ARIMIDEX [Suspect]
     Indication: BREAST CANCER
     Route: 048

REACTIONS (3)
  - OSTEOPENIA [None]
  - ANXIETY [None]
  - DRUG DOSE OMISSION [None]
